FAERS Safety Report 6626522-0 (Version None)
Quarter: 2010Q1

REPORT INFORMATION
  Report Type: 
  Country: None (occurrence: None)
  Receive Date: 20100310
  Receipt Date: 20100224
  Transmission Date: 20100710
  Serious: Yes (Hospitalization, Other)
  Sender: FDA-Public Use
  Company Number: US-ELI_LILLY_AND_COMPANY-US201003000271

PATIENT
  Sex: Female

DRUGS (4)
  1. EVISTA [Suspect]
     Indication: OSTEOPOROSIS
     Dosage: 60 MG, DAILY (1/D)
     Dates: start: 20080501, end: 20080501
  2. AVAPRO [Concomitant]
     Dosage: 150 MG, DAILY (1/D)
  3. TRIAMTERENE AND HYDROCHLOROTHIAZIDE [Concomitant]
     Dosage: UNK, DAILY (1/D)
  4. TOPROL-XL [Concomitant]
     Dosage: 25 MG, DAILY (1/D)

REACTIONS (4)
  - CEREBROVASCULAR DISORDER [None]
  - FEELING ABNORMAL [None]
  - NERVE INJURY [None]
  - POLYNEUROPATHY [None]
